FAERS Safety Report 22098054 (Version 1)
Quarter: 2023Q1

REPORT INFORMATION
  Report Type: Spontaneous
  Country: SE (occurrence: SE)
  Receive Date: 20230315
  Receipt Date: 20230315
  Transmission Date: 20230418
  Serious: Yes (Other)
  Sender: FDA-Public Use
  Company Number: None

PATIENT
  Age: 42 Year
  Sex: Female
  Weight: 47 kg

DRUGS (1)
  1. CYKLOKAPRON [Suspect]
     Active Substance: TRANEXAMIC ACID
     Indication: Post procedural haemorrhage
     Dosage: 500 MILLIGRAM, TID,(2 TABLETS, 3 TIMES/DAY)
     Route: 048
     Dates: start: 20220614, end: 20220615

REACTIONS (3)
  - Headache [Recovering/Resolving]
  - Abdominal pain [Recovering/Resolving]
  - Heart rate increased [Recovered/Resolved]

NARRATIVE: CASE EVENT DATE: 20220614
